FAERS Safety Report 12815653 (Version 1)
Quarter: 2016Q4

REPORT INFORMATION
  Report Type: Spontaneous
  Country: US (occurrence: US)
  Receive Date: 20161005
  Receipt Date: 20161005
  Transmission Date: 20170207
  Serious: Yes (Hospitalization)
  Sender: FDA-Public Use
  Company Number: None

PATIENT
  Age: 73 Year
  Sex: Male

DRUGS (18)
  1. MULTI-VITAMIN [Concomitant]
     Active Substance: .ALPHA.-TOCOPHEROL ACETATE, DL-\ASCORBIC ACID\CYANOCOBALAMIN\FLUORIDE ION\FOLIC ACID\NIACIN\PYRIDOXINE\RIBOFLAVIN\THIAMINE\VITAMIN A\VITAMIN D
  2. FUROSEMIDE. [Concomitant]
     Active Substance: FUROSEMIDE
  3. DIGOXIN. [Concomitant]
     Active Substance: DIGOXIN
  4. PRILOSEC [Concomitant]
     Active Substance: OMEPRAZOLE MAGNESIUM
  5. POT CL MICRO [Concomitant]
  6. ADVAIR DISKU AER [Concomitant]
  7. PROMETHAZINE SYP DM [Concomitant]
  8. SPIRIVA [Concomitant]
     Active Substance: TIOTROPIUM BROMIDE MONOHYDRATE
  9. POTASSIUM [Concomitant]
     Active Substance: POTASSIUM
  10. LASIX [Concomitant]
     Active Substance: FUROSEMIDE
  11. CARVEDILOL. [Concomitant]
     Active Substance: CARVEDILOL
  12. VITAMIN C [Concomitant]
     Active Substance: ASCORBIC ACID
  13. LETARIS [Concomitant]
     Active Substance: AMBRISENTAN
  14. ADCIRCA [Suspect]
     Active Substance: TADALAFIL
     Indication: PULMONARY ARTERIAL HYPERTENSION
     Route: 048
     Dates: start: 20161004
  15. LEVOFLOXACIN. [Concomitant]
     Active Substance: LEVOFLOXACIN
  16. METOLAZONE. [Concomitant]
     Active Substance: METOLAZONE
  17. ASPIRIN. [Concomitant]
     Active Substance: ASPIRIN
  18. PROAIR HFA [Concomitant]
     Active Substance: ALBUTEROL SULFATE

REACTIONS (1)
  - Pneumonia [None]

NARRATIVE: CASE EVENT DATE: 20160930
